FAERS Safety Report 21738907 (Version 1)
Quarter: 2022Q4

REPORT INFORMATION
  Report Type: Spontaneous
  Country: US (occurrence: US)
  Receive Date: 20221216
  Receipt Date: 20221216
  Transmission Date: 20230112
  Serious: Yes (Other)
  Sender: FDA-Public Use
  Company Number: US-MLMSERVICE-20221125-3943012-1

PATIENT
  Age: 24 Year
  Sex: Male

DRUGS (1)
  1. IBUPROFEN [Suspect]
     Active Substance: IBUPROFEN
     Indication: Alcoholic hangover
     Dosage: UNK
     Route: 065

REACTIONS (2)
  - Flank pain [Recovered/Resolved]
  - Acute kidney injury [Recovered/Resolved]
